FAERS Safety Report 8828187 (Version 3)
Quarter: 2012Q4

REPORT INFORMATION
  Report Type: 
  Country: US (occurrence: US)
  Receive Date: 20121005
  Receipt Date: 20121106
  Transmission Date: 20130627
  Serious: Yes (Hospitalization, Disabling, Other)
  Sender: FDA-Public Use
  Company Number: US-PFIZER INC-2012243045

PATIENT
  Age: 47 Year
  Sex: Female
  Weight: 60 kg

DRUGS (6)
  1. PREMARIN [Suspect]
     Indication: HORMONE REPLACEMENT THERAPY
     Dosage: 0.3 mg, daily
     Dates: start: 1988
  2. PREMARIN [Suspect]
     Indication: OSTEOPOROSIS PROPHYLAXIS
  3. OMEPRAZOLE [Concomitant]
     Indication: GASTROOESOPHAGEAL REFLUX DISEASE
     Dosage: UNK, daily
  4. MORPHINE SULFATE [Concomitant]
     Indication: PAIN
     Dosage: UNK, as needed
  5. CLONAZEPAM [Concomitant]
     Indication: NERVOUS SYSTEM DISORDER
     Dosage: UNK, as needed
  6. AMBIEN [Concomitant]
     Indication: SLEEP DISORDER
     Dosage: 10 mg, daily (at bedtime)

REACTIONS (3)
  - Multiple fractures [Unknown]
  - Road traffic accident [Unknown]
  - Arthritis [Unknown]
